FAERS Safety Report 10915662 (Version 1)
Quarter: 2015Q1

REPORT INFORMATION
  Report Type: Spontaneous
  Country: US (occurrence: None)
  Receive Date: 20150311
  Receipt Date: 20150311
  Transmission Date: 20150721
  Serious: Yes (Hospitalization, Disabling)
  Sender: FDA-Public Use
  Company Number: None

PATIENT
  Age: 53 Year
  Sex: Female
  Weight: 68.04 kg

DRUGS (3)
  1. RESTATIS [Concomitant]
  2. DUREZOL [Concomitant]
     Active Substance: DIFLUPREDNATE
  3. JETREA [Suspect]
     Active Substance: OCRIPLASMIN
     Indication: EYE DISORDER
     Dosage: 1 INJECTION
     Dates: start: 20130930, end: 20130930

REACTIONS (3)
  - Retinal oedema [None]
  - Optic neuritis [None]
  - Retinal detachment [None]

NARRATIVE: CASE EVENT DATE: 20130930
